FAERS Safety Report 7461804-4 (Version None)
Quarter: 2011Q2

REPORT INFORMATION
  Report Type: 
  Country: None (occurrence: None)
  Receive Date: 20110506
  Receipt Date: 20110502
  Transmission Date: 20111010
  Serious: Yes (Hospitalization)
  Sender: FDA-Public Use
  Company Number: US-ELI_LILLY_AND_COMPANY-US200911007308

PATIENT
  Sex: Male
  Weight: 102.4 kg

DRUGS (13)
  1. ASPIRIN [Concomitant]
     Dosage: 81 MG, DAILY (1/D)
     Route: 048
  2. HYDROCHLOROTHIAZIDE [Concomitant]
     Dosage: 25 MG, DAILY (1/D)
     Route: 048
  3. BYETTA [Suspect]
     Dosage: UNK, UNKNOWN
     Route: 065
     Dates: start: 20060309, end: 20080818
  4. DIOVAN [Concomitant]
     Dosage: 320 MG, DAILY (1/D)
     Route: 048
  5. NORVASC [Concomitant]
     Dosage: 10 MG, DAILY (1/D)
     Route: 048
  6. BYETTA [Suspect]
     Dosage: 5 U, 2/D
     Route: 058
     Dates: end: 20081016
  7. GLYBURIDE [Concomitant]
     Indication: DIABETES MELLITUS
     Dosage: 10 MG, 2/D
     Route: 048
     Dates: start: 19950101
  8. BUTROPIUM [Concomitant]
     Indication: DEPRESSION
     Dates: start: 19950101
  9. WELLBUTRIN [Concomitant]
     Dosage: 150 MBQ, 2/D
     Route: 048
  10. LANTUS [Concomitant]
     Dosage: 70 U, EACH EVENING
     Route: 058
  11. MULTI-VITAMIN [Concomitant]
     Dosage: 1 D/F, DAILY (1/D)
     Route: 048
  12. GEMFIBROZIL [Concomitant]
     Indication: BLOOD CHOLESTEROL INCREASED
     Dosage: 600 MG, 2/D
     Route: 048
     Dates: start: 19940101
  13. ATENOLOL [Concomitant]
     Dosage: 50 MG, DAILY (1/D)
     Route: 048

REACTIONS (4)
  - OFF LABEL USE [None]
  - PANCREATITIS [None]
  - NEPHROLITHIASIS [None]
  - RENAL INJURY [None]
